FAERS Safety Report 4476609-6 (Version None)
Quarter: 2004Q4

REPORT INFORMATION
  Report Type: 
  Country: None (occurrence: None)
  Receive Date: 20041013
  Receipt Date: 20040924
  Transmission Date: 20050328
  Serious: Yes (Other)
  Sender: FDA-Public Use
  Company Number: USA040979326

PATIENT
  Age: 84 Year
  Sex: Female

DRUGS (2)
  1. EVISTA [Suspect]
     Indication: BONE DISORDER
     Dates: start: 20040901
  2. ALPHAGAN [Concomitant]

REACTIONS (2)
  - CONDITION AGGRAVATED [None]
  - MACULAR DEGENERATION [None]
